FAERS Safety Report 6443089-0 (Version None)
Quarter: 2009Q4

REPORT INFORMATION
  Report Type: 
  Country: None (occurrence: None)
  Receive Date: 20091117
  Receipt Date: 20091105
  Transmission Date: 20100525
  Serious: Yes (Hospitalization)
  Sender: FDA-Public Use
  Company Number: FR-ELI_LILLY_AND_COMPANY-FR200911001483

PATIENT
  Sex: Female
  Weight: 84 kg

DRUGS (9)
  1. BYETTA [Suspect]
     Indication: DIABETES MELLITUS
     Dosage: 5 UG, 2/D
     Route: 058
     Dates: start: 20090501, end: 20091007
  2. DIAMICRON [Concomitant]
     Indication: DIABETES MELLITUS
     Dosage: 120 MG, DAILY (1/D)
     Route: 048
     Dates: end: 20091007
  3. GLUCOPHAGE [Concomitant]
     Indication: DIABETES MELLITUS
     Dosage: 850 MG, 3/D
     Route: 048
     Dates: end: 20091007
  4. APROVEL [Concomitant]
     Dosage: UNK, UNKNOWN
     Route: 065
  5. LEVOTHYROXINE SODIUM [Concomitant]
     Dosage: UNK, UNKNOWN
     Route: 065
  6. RISPERDAL [Concomitant]
     Dosage: UNK, UNKNOWN
     Route: 065
  7. XANAX [Concomitant]
     Dosage: UNK, UNKNOWN
     Route: 065
  8. PROZAC [Concomitant]
     Dosage: UNK, UNKNOWN
     Route: 065
  9. VENTOLIN [Concomitant]
     Dosage: UNK, UNKNOWN
     Route: 065

REACTIONS (7)
  - ABDOMINAL PAIN [None]
  - ABDOMINAL PAIN UPPER [None]
  - COLONIC POLYP [None]
  - GASTROINTESTINAL DISORDER [None]
  - IMPAIRED GASTRIC EMPTYING [None]
  - NAUSEA [None]
  - VOMITING [None]
